FAERS Safety Report 11194788 (Version 1)
Quarter: 2015Q2

REPORT INFORMATION
  Report Type: Spontaneous
  Country: FR (occurrence: FR)
  Receive Date: 20150617
  Receipt Date: 20150617
  Transmission Date: 20150821
  Serious: Yes (Other)
  Sender: FDA-Public Use
  Company Number: FR-009507513-1506FRA006381

PATIENT
  Age: 75 Year
  Sex: Male

DRUGS (12)
  1. INVANZ [Suspect]
     Active Substance: ERTAPENEM SODIUM
     Indication: ENTEROBACTER SEPSIS
     Dosage: TOTAL DAILY DOSE: 1 G 48 H AFTER DIALYSIS
     Route: 042
     Dates: start: 20150417, end: 20150429
  2. ACETAMINOPHEN. [Concomitant]
     Active Substance: ACETAMINOPHEN
     Route: 048
  3. VENOFER [Concomitant]
     Active Substance: IRON SUCROSE
     Dosage: STRENGTH: 100 MG/ 5 ML
     Route: 042
  4. SYMBICORT [Concomitant]
     Active Substance: BUDESONIDE\FORMOTEROL FUMARATE DIHYDRATE
     Route: 055
  5. CYMBALTA [Concomitant]
     Active Substance: DULOXETINE HYDROCHLORIDE
     Route: 048
  6. FORLAX [Concomitant]
     Active Substance: POLYETHYLENE GLYCOL 4000
     Route: 048
  7. LYRICA [Concomitant]
     Active Substance: PREGABALIN
     Route: 048
  8. CIFLOX (CIPROFLOXACIN HYDROCHLORIDE (+) HYDROCORTISONE) [Concomitant]
     Route: 048
  9. ARANESP [Concomitant]
     Active Substance: DARBEPOETIN ALFA
  10. PREVISCAN [Concomitant]
     Active Substance: FLUINDIONE
     Route: 048
  11. CORDARONE [Concomitant]
     Active Substance: AMIODARONE HYDROCHLORIDE
     Route: 048
  12. HUMALOG MIX50/50 [Concomitant]
     Active Substance: INSULIN LISPRO
     Dosage: STRENGTH: 100 IU/ML

REACTIONS (2)
  - Confusional state [Unknown]
  - Encephalopathy [Unknown]

NARRATIVE: CASE EVENT DATE: 20150429
